FAERS Safety Report 22046543 (Version 1)
Quarter: 2023Q1

REPORT INFORMATION
  Report Type: Spontaneous
  Country: FR (occurrence: FR)
  Receive Date: 20230228
  Receipt Date: 20230228
  Transmission Date: 20230417
  Serious: Yes (Other)
  Sender: FDA-Public Use
  Company Number: None

PATIENT
  Age: 69 Year
  Sex: Female

DRUGS (3)
  1. EMTRIVA [Suspect]
     Active Substance: EMTRICITABINE
     Indication: HIV infection
     Dosage: 1 DOSAGE FORM, QD
     Route: 048
     Dates: start: 20160526, end: 20220630
  2. VIREAD [Suspect]
     Active Substance: TENOFOVIR DISOPROXIL FUMARATE
     Indication: HIV infection
     Dosage: 1 DOSAGE FORM, QD
     Route: 048
     Dates: start: 20160526, end: 20220630
  3. ISENTRESS [Suspect]
     Active Substance: RALTEGRAVIR POTASSIUM
     Indication: HIV infection
     Dosage: 1 DOSAGE FORM, QOD
     Route: 048
     Dates: start: 20170117, end: 20220630

REACTIONS (2)
  - Blood phosphorus decreased [Recovering/Resolving]
  - Osteomalacia [Not Recovered/Not Resolved]

NARRATIVE: CASE EVENT DATE: 20210304
